FAERS Safety Report 13332472 (Version 1)
Quarter: 2017Q1

REPORT INFORMATION
  Report Type: Spontaneous
  Country: US (occurrence: US)
  Receive Date: 20170314
  Receipt Date: 20170314
  Transmission Date: 20170428
  Serious: No
  Sender: FDA-Public Use
  Company Number: US-SHIRE-US201705612

PATIENT
  Age: 68 Year
  Sex: Female
  Weight: 53.52 kg

DRUGS (2)
  1. XIIDRA [Suspect]
     Active Substance: LIFITEGRAST
     Indication: DRY EYE
     Dosage: 1 GTT 50 MG/ML, 1X/DAY:QD (BOTH EYES)
     Route: 047
     Dates: start: 20170303
  2. NATURE-THROID [Concomitant]
     Active Substance: THYROID, PORCINE
     Indication: HYPOTHYROIDISM
     Dosage: 48.75 ?G, 1X/DAY:QD
     Route: 048

REACTIONS (3)
  - Instillation site discomfort [Unknown]
  - Influenza [Unknown]
  - Inappropriate schedule of drug administration [Not Recovered/Not Resolved]

NARRATIVE: CASE EVENT DATE: 201703
